FAERS Safety Report 23980154 (Version 1)
Quarter: 2024Q2

REPORT INFORMATION
  Report Type: Spontaneous
  Country: US (occurrence: US)
  Receive Date: 20240617
  Receipt Date: 20240617
  Transmission Date: 20240716
  Serious: Yes (Other)
  Sender: FDA-Public Use
  Company Number: US-AUROBINDO-AUR-APL-2024-028878

PATIENT
  Age: 4 Year
  Sex: Female

DRUGS (6)
  1. RUFINAMIDE [Suspect]
     Active Substance: RUFINAMIDE
     Indication: Myoclonic epilepsy
     Dosage: 400 MILLIGRAM, TWO TIMES A DAY
     Route: 065
  2. RUFINAMIDE [Suspect]
     Active Substance: RUFINAMIDE
     Indication: Tonic convulsion
  3. RUFINAMIDE [Suspect]
     Active Substance: RUFINAMIDE
     Indication: Atonic seizures
  4. TOPIRAMATE [Concomitant]
     Active Substance: TOPIRAMATE
     Indication: Myoclonic epilepsy
     Dosage: UNK
     Route: 065
  5. TOPIRAMATE [Concomitant]
     Active Substance: TOPIRAMATE
     Indication: Tonic convulsion
  6. TOPIRAMATE [Concomitant]
     Active Substance: TOPIRAMATE
     Indication: Atonic seizures

REACTIONS (1)
  - Change in seizure presentation [Recovered/Resolved]
